FAERS Safety Report 7517940-7 (Version None)
Quarter: 2011Q2

REPORT INFORMATION
  Report Type: 
  Country: None (occurrence: None)
  Receive Date: 20110523
  Receipt Date: 20110510
  Transmission Date: 20111010
  Serious: Yes (Other)
  Sender: FDA-Public Use
  Company Number: ACO_23725_2011

PATIENT
  Age: 59 Year
  Sex: Female

DRUGS (10)
  1. MULTIVITAMIN /00097801/ (ASCORBIC ACID, CALCIUM PANTOTHENATE, ERGOCALC [Concomitant]
  2. NUVIGIL [Concomitant]
  3. ZOLPIDEM [Concomitant]
  4. TRAMADOL HCL [Concomitant]
  5. AMPYRA [Suspect]
     Indication: PRODUCT USED FOR UNKNOWN INDICATION
     Dates: start: 20110301
  6. COUMADIN /00041802/ B(WARFARIN SODIUM) [Concomitant]
  7. COPAXONE [Suspect]
     Indication: MULTIPLE SCLEROSIS
     Dosage: 20 MG, SUBCUTANEOUS
     Route: 058
     Dates: start: 20110228
  8. TRAZODONE HCL [Concomitant]
  9. FLUOXETINE [Concomitant]
  10. CITRACAL /00751520/ (CALCIUM CITRATE) [Concomitant]

REACTIONS (1)
  - CONVULSION [None]
